FAERS Safety Report 23587188 (Version 1)
Quarter: 2024Q1

REPORT INFORMATION
  Report Type: Spontaneous
  Country: US (occurrence: None)
  Receive Date: 20240301
  Receipt Date: 20240301
  Transmission Date: 20240410
  Serious: Yes (Life-Threatening, Hospitalization, Other)
  Sender: FDA-Public Use
  Company Number: 2024A045476

PATIENT
  Sex: Female

DRUGS (5)
  1. BYDUREON BCISE [Suspect]
     Active Substance: EXENATIDE
     Dosage: 2.0MG UNKNOWN
  2. BYETTA [Suspect]
     Active Substance: EXENATIDE
     Dosage: UNKNOWN
  3. JARDIANCE [Concomitant]
     Active Substance: EMPAGLIFLOZIN
  4. JANUVIA [Concomitant]
     Active Substance: SITAGLIPTIN PHOSPHATE
  5. INSULIN NOS [Concomitant]
     Active Substance: INSULIN NOS

REACTIONS (14)
  - Cardiac arrest [Unknown]
  - Renal failure [Not Recovered/Not Resolved]
  - Cardiac disorder [Unknown]
  - Haemorrhagic stroke [Unknown]
  - Mass [Not Recovered/Not Resolved]
  - Overweight [Not Recovered/Not Resolved]
  - Feeling abnormal [Not Recovered/Not Resolved]
  - Agitation [Not Recovered/Not Resolved]
  - Weight decreased [Unknown]
  - Liver injury [Not Recovered/Not Resolved]
  - Mood altered [Unknown]
  - Chronic obstructive pulmonary disease [Not Recovered/Not Resolved]
  - Ill-defined disorder [Unknown]
  - Blood glucose increased [Not Recovered/Not Resolved]
